FAERS Safety Report 6791369-1 (Version None)
Quarter: 2010Q2

REPORT INFORMATION
  Report Type: 
  Country: None (occurrence: None)
  Receive Date: 20100621
  Receipt Date: 20100616
  Transmission Date: 20101027
  Serious: Yes (Hospitalization)
  Sender: FDA-Public Use
  Company Number: 2010SP033962

PATIENT
  Age: 60 Year
  Sex: Male

DRUGS (13)
  1. NOXAFIL [Suspect]
     Indication: PROPHYLAXIS
     Dosage: ; PO
     Route: 048
     Dates: end: 20090914
  2. NEORAL [Suspect]
     Indication: BONE MARROW TRANSPLANT
     Dosage: 0.4 ML; BID; PO
     Route: 048
     Dates: start: 20090701, end: 20090913
  3. CORTANCYL [Concomitant]
  4. CELLCEPT [Concomitant]
  5. WELLVONE [Concomitant]
  6. ZELITREX [Concomitant]
  7. BACTRIM [Concomitant]
  8. HEMIGOXINE NATIVELLE [Concomitant]
  9. CORDARONE [Concomitant]
  10. ISOPTIN [Concomitant]
  11. DEROXAT [Concomitant]
  12. TAZOCILLINE [Concomitant]
  13. ZOVIRAX [Concomitant]

REACTIONS (8)
  - ALTERED STATE OF CONSCIOUSNESS [None]
  - DYSKINESIA [None]
  - ELECTROENCEPHALOGRAM ABNORMAL [None]
  - HALLUCINATION [None]
  - MENINGITIS [None]
  - MYOCLONUS [None]
  - NO THERAPEUTIC RESPONSE [None]
  - OVERDOSE [None]
